FAERS Safety Report 11167284 (Version 1)
Quarter: 2015Q2

REPORT INFORMATION
  Report Type: Spontaneous
  Country: US (occurrence: None)
  Receive Date: 20150515
  Receipt Date: 20150515
  Transmission Date: 20150821
  Serious: Yes (Other)
  Sender: FDA-Public Use
  Company Number: 2014005713

PATIENT
  Sex: Male

DRUGS (1)
  1. CIMZIA [Suspect]
     Active Substance: CERTOLIZUMAB PEGOL
     Dosage: UNKNOWN DOSE AND FREQUENCY

REACTIONS (4)
  - Oral candidiasis [None]
  - Laceration [None]
  - Fungal infection [None]
  - Skin infection [None]
